FAERS Safety Report 19144842 (Version 4)
Quarter: 2021Q4

REPORT INFORMATION
  Report Type: Report from Study
  Country: JP (occurrence: JP)
  Receive Date: 20210416
  Receipt Date: 20211011
  Transmission Date: 20220303
  Serious: Yes (Death, Hospitalization)
  Sender: FDA-Public Use
  Company Number: JP-ASTELLAS-2021JP004168

PATIENT
  Age: 63 Year
  Sex: Male

DRUGS (14)
  1. ENFORTUMAB VEDOTIN [Suspect]
     Active Substance: ENFORTUMAB VEDOTIN
     Indication: Oesophageal carcinoma
     Dosage: 1.0 MG/KG, UNKNOWN FREQ.
     Route: 065
     Dates: start: 20201126, end: 20210225
  2. NEXIUM [Concomitant]
     Active Substance: ESOMEPRAZOLE MAGNESIUM
     Indication: Gastritis prophylaxis
     Dosage: 1 DF, ONCE DAILY, AFTER BREAKFAST
     Route: 048
  3. AMLODIPINE BESYLATE [Concomitant]
     Active Substance: AMLODIPINE BESYLATE
     Indication: Hypertension
     Dosage: 1 DF, ONCE DAILY, AFTER BREAKFAST
     Route: 048
     Dates: start: 201911
  4. ALFACALCIDOL [Concomitant]
     Active Substance: ALFACALCIDOL
     Indication: Product used for unknown indication
     Dosage: 4 DF, ONCE DAILY, AFTER BREAKFAST
     Route: 048
     Dates: start: 20200407
  5. CALCIUM LACTATE [Concomitant]
     Active Substance: CALCIUM LACTATE
     Indication: Product used for unknown indication
     Dosage: 1 G, THRICE DAILY, AFTER EVERY MEAL
     Route: 048
     Dates: start: 20200407
  6. LEVOTHYROXINE SODIUM [Concomitant]
     Active Substance: LEVOTHYROXINE SODIUM
     Indication: Hypothyroidism
     Dosage: 3 DF, ONCE DAILY, AFTER BREAKFAST
     Route: 048
     Dates: start: 20200415
  7. ZOLPIDEM TARTRATE [Concomitant]
     Active Substance: ZOLPIDEM TARTRATE
     Indication: Insomnia
     Dosage: AS APPROPRIATE
     Route: 048
     Dates: start: 20200917
  8. MAGNESIUM OXIDE [Concomitant]
     Active Substance: MAGNESIUM OXIDE
     Indication: Constipation
     Dosage: AS APPROPRIATE, ADEQUATE DOSE
     Route: 048
     Dates: start: 20201203
  9. SODIUM PICOSULFATE [Concomitant]
     Active Substance: SODIUM PICOSULFATE
     Indication: Constipation
     Dosage: AS APPROPRIATE, ADEQUATE DOSE
     Route: 048
     Dates: start: 20201203
  10. BETAMETHASONE DIPROPIONATE [Concomitant]
     Active Substance: BETAMETHASONE DIPROPIONATE
     Indication: Rash
     Dosage: AS APPROPRIATE, ADEQUATE DOSE
     Route: 062
     Dates: start: 20201203
  11. SHAKUYAKUKANZOTO [Concomitant]
     Active Substance: HERBALS
     Indication: Prophylaxis
     Dosage: 1 DF, THRICE DAILY, AFTER EVERY MEAL
     Route: 048
     Dates: start: 20201210
  12. DIETARY SUPPLEMENT\PROBIOTICS [Concomitant]
     Active Substance: DIETARY SUPPLEMENT\PROBIOTICS
     Indication: Constipation
     Dosage: 1 DF, THRICE DAILY, AFTER EVERY MEAL
     Route: 048
     Dates: start: 20210107
  13. HERBALS [Concomitant]
     Active Substance: HERBALS
     Indication: Constipation
     Dosage: 2 DF, THRICE DAILY, AFTER EVERY MEAL
     Route: 048
     Dates: start: 20210121
  14. GLYCOSAMINOGLYCANS [Concomitant]
     Active Substance: GLYCOSAMINOGLYCANS
     Indication: Rash
     Dosage: AS APPROPRIATE, ADEQUATE DOSE
     Route: 050
     Dates: start: 20210218

REACTIONS (1)
  - Dermatomyositis [Recovering/Resolving]

NARRATIVE: CASE EVENT DATE: 20210303
